FAERS Safety Report 21327419 (Version 1)
Quarter: 2022Q3

REPORT INFORMATION
  Report Type: Spontaneous
  Country: JP (occurrence: JP)
  Receive Date: 20220913
  Receipt Date: 20220913
  Transmission Date: 20221026
  Serious: Yes (Other)
  Sender: FDA-Public Use
  Company Number: JP-Teva Takeda Yakuhin-2022-JP-003415J

PATIENT
  Age: 60 Year
  Sex: Female

DRUGS (1)
  1. CERCINE [Suspect]
     Active Substance: DIAZEPAM
     Indication: Sedation
     Dosage: 6 MILLIGRAM DAILY;
     Route: 042
     Dates: start: 20210408

REACTIONS (8)
  - Skin necrosis [Unknown]
  - Neuropathy peripheral [Unknown]
  - Injection site pain [Unknown]
  - Pain in extremity [Unknown]
  - Peripheral coldness [Unknown]
  - Hypoaesthesia [Unknown]
  - Vascular pain [Unknown]
  - Product use in unapproved indication [Unknown]

NARRATIVE: CASE EVENT DATE: 20210408
